FAERS Safety Report 4362400-8 (Version None)
Quarter: 2004Q2

REPORT INFORMATION
  Report Type: 
  Country: None (occurrence: None)
  Receive Date: 20040521
  Receipt Date: 20040512
  Transmission Date: 20050107
  Serious: Yes (Other)
  Sender: FDA-Public Use
  Company Number: US-MERCK-0405USA00928

PATIENT
  Age: 83 Year
  Sex: Female

DRUGS (6)
  1. ALLOPURINOL [Concomitant]
     Route: 065
  2. ATENOLOL [Concomitant]
     Route: 065
  3. URECHOLINE [Concomitant]
     Route: 065
  4. HYZAAR [Suspect]
     Indication: HYPERTENSION
     Route: 048
  5. SYNTHROID [Concomitant]
     Route: 065
  6. NITROFURANTOIN [Concomitant]
     Route: 065

REACTIONS (2)
  - TRANSIENT ISCHAEMIC ATTACK [None]
  - URINARY RETENTION [None]
